FAERS Safety Report 20607763 (Version 5)
Quarter: 2024Q4

REPORT INFORMATION
  Report Type: Report from Study
  Country: ES (occurrence: ES)
  Receive Date: 20220317
  Receipt Date: 20241008
  Transmission Date: 20250114
  Serious: No
  Sender: ROCHE
  Company Number: ES-ROCHE-3051818

PATIENT
  Age: 39 Year
  Sex: Male

DRUGS (14)
  1. OCRELIZUMAB [Suspect]
     Active Substance: OCRELIZUMAB
     Indication: Relapsing-remitting multiple sclerosis
     Dosage: TOTAL VOLUME PRIOR AE WAS 500 ML
     Route: 042
     Dates: start: 20200702
  2. OCRELIZUMAB [Suspect]
     Active Substance: OCRELIZUMAB
     Dosage: TOTAL VOLUME PRIOR AE WAS 500 ML
     Route: 042
     Dates: start: 20200716, end: 20200716
  3. OCRELIZUMAB [Suspect]
     Active Substance: OCRELIZUMAB
     Dosage: TOTAL VOLUME PRIOR AE WAS 500 ML
     Route: 042
     Dates: start: 20210908, end: 20210908
  4. OCRELIZUMAB [Suspect]
     Active Substance: OCRELIZUMAB
     Dosage: TOTAL VOLUME PRIOR AE WAS 500 ML
     Route: 042
     Dates: start: 20220323, end: 20220323
  5. OCRELIZUMAB [Suspect]
     Active Substance: OCRELIZUMAB
     Dosage: TOTAL VOLUME PRIOR AE WAS 500 ML
     Route: 042
     Dates: start: 20240327, end: 20240327
  6. OCRELIZUMAB [Suspect]
     Active Substance: OCRELIZUMAB
     Dosage: TOTAL VOLUME PRIOR AE WAS 500 ML
     Route: 042
     Dates: start: 20240927, end: 20240927
  7. OCRELIZUMAB [Suspect]
     Active Substance: OCRELIZUMAB
     Dosage: TOTAL VOLUME PRIOR AE WAS 500 ML
     Route: 042
     Dates: start: 20220922, end: 20220922
  8. OCRELIZUMAB [Suspect]
     Active Substance: OCRELIZUMAB
     Dosage: TOTAL VOLUME PRIOR AE WAS 500 ML
     Route: 042
     Dates: start: 20210119, end: 20210119
  9. OCRELIZUMAB [Suspect]
     Active Substance: OCRELIZUMAB
     Dosage: TOTAL VOLUME PRIOR AE WAS 500 ML
     Route: 042
     Dates: start: 20230921, end: 20230921
  10. OCRELIZUMAB [Suspect]
     Active Substance: OCRELIZUMAB
     Dosage: TOTAL VOLUME PRIOR AE WAS 500 ML
     Route: 042
     Dates: start: 20230323, end: 20230323
  11. METHYLPREDNISOLONE [Concomitant]
     Active Substance: METHYLPREDNISOLONE
     Dosage: FREQUENCY TEXT:ONCE BEFORE INFUSION
     Route: 042
     Dates: start: 20220307, end: 20220307
  12. ACETAMINOPHEN [Concomitant]
     Active Substance: ACETAMINOPHEN
     Dosage: FREQUENCY TEXT:ONCE BEFORE INFUSION
     Route: 042
     Dates: start: 20220307, end: 20220307
  13. DALFAMPRIDINE [Concomitant]
     Active Substance: DALFAMPRIDINE
     Dosage: FREQUENCY TEXT:OTHER
     Route: 048
     Dates: start: 20210622
  14. CALCIFEDIOL [Concomitant]
     Active Substance: CALCIFEDIOL
     Route: 048
     Dates: start: 20220301, end: 20230921

REACTIONS (1)
  - COVID-19 [Recovered/Resolved]

NARRATIVE: CASE EVENT DATE: 20220303
